FAERS Safety Report 20160525 (Version 1)
Quarter: 2021Q4

REPORT INFORMATION
  Report Type: Spontaneous
  Country: US (occurrence: None)
  Receive Date: 20211207
  Receipt Date: 20211207
  Transmission Date: 20220303
  Serious: Yes (Other)
  Sender: FDA-Public Use
  Company Number: None

PATIENT
  Sex: Female

DRUGS (29)
  1. TOLVAPTAN [Suspect]
     Active Substance: TOLVAPTAN
     Indication: Inappropriate antidiuretic hormone secretion
     Dosage: OTHER QUANTITY : 1/4 TABLET;?FREQUENCY : DAILY;?
     Route: 048
     Dates: start: 20200909
  2. ACARBOSE [Concomitant]
     Active Substance: ACARBOSE
  3. AMLODIPINE [Concomitant]
     Active Substance: AMLODIPINE BESYLATE
  4. ASPIRIN [Concomitant]
     Active Substance: ASPIRIN
  5. ATORVASTATIN [Concomitant]
     Active Substance: ATORVASTATIN
  6. BENICAR [Concomitant]
     Active Substance: OLMESARTAN MEDOXOMIL
  7. BENICAR [Concomitant]
     Active Substance: OLMESARTAN MEDOXOMIL
  8. BRINLNTA [Concomitant]
  9. CLOPIDOGRL [Concomitant]
  10. ESOMEPRAZOLE MAGNESIUM [Concomitant]
     Active Substance: ESOMEPRAZOLE MAGNESIUM
  11. FAMOTIDINE [Concomitant]
     Active Substance: FAMOTIDINE
  12. FOLIC ACID [Concomitant]
     Active Substance: FOLIC ACID
  13. FUROSEMIDE [Concomitant]
     Active Substance: FUROSEMIDE
  14. HYDRALAZINE [Concomitant]
     Active Substance: HYDRALAZINE HYDROCHLORIDE
  15. LEVOTHYROXINE [Concomitant]
  16. LIPITOR [Concomitant]
     Active Substance: ATORVASTATIN CALCIUM
  17. LOSARTAN POTASSIUM [Concomitant]
     Active Substance: LOSARTAN POTASSIUM
  18. METFORMIN [Concomitant]
  19. MULTVITAMIN [Concomitant]
  20. NEXIUM [Concomitant]
     Active Substance: ESOMEPRAZOLE MAGNESIUM
  21. ONDANSETRON [Concomitant]
     Active Substance: ONDANSETRON
  22. FERROUS SULFATE [Concomitant]
     Active Substance: FERROUS SULFATE
  23. SYNTHROID [Concomitant]
     Active Substance: LEVOTHYROXINE SODIUM
  24. TASIGNA [Concomitant]
     Active Substance: NILOTINIB
  25. TEKTURNA [Concomitant]
     Active Substance: ALISKIREN HEMIFUMARATE
  26. TOLVAPTAN [Concomitant]
     Active Substance: TOLVAPTAN
  27. TOPROL XL [Concomitant]
     Active Substance: METOPROLOL SUCCINATE
  28. TRAVOPROST [Concomitant]
     Active Substance: TRAVOPROST
  29. TYLENOL [Concomitant]
     Active Substance: ACETAMINOPHEN

REACTIONS (1)
  - Cerebrovascular accident [None]
